FAERS Safety Report 10714900 (Version 1)
Quarter: 2015Q1

REPORT INFORMATION
  Report Type: Report from Study
  Country: US (occurrence: US)
  Receive Date: 20150115
  Receipt Date: 20150115
  Transmission Date: 20150721
  Serious: Yes (Other)
  Sender: FDA-Public Use
  Company Number: US-ACTELION-A-US2015-111052

PATIENT
  Age: 51 Year
  Sex: Female

DRUGS (3)
  1. TRACLEER [Suspect]
     Active Substance: BOSENTAN\BOSENTAN MONOHYDRATE
     Indication: PULMONARY ARTERIAL HYPERTENSION
     Dosage: UNK
     Route: 048
  2. ADCIRCA [Concomitant]
     Active Substance: TADALAFIL
  3. RIOCIGUAT [Concomitant]
     Active Substance: RIOCIGUAT

REACTIONS (11)
  - Fatigue [Unknown]
  - Presyncope [Unknown]
  - Condition aggravated [Unknown]
  - Dyspnoea [Unknown]
  - Arthritis [Unknown]
  - Diarrhoea [Unknown]
  - Walking distance test abnormal [Unknown]
  - Weight decreased [Unknown]
  - Vomiting [Unknown]
  - Limb operation [Unknown]
  - Gastroenteritis viral [Unknown]

NARRATIVE: CASE EVENT DATE: 201412
